FAERS Safety Report 25945158 (Version 1)
Quarter: 2025Q4

REPORT INFORMATION
  Report Type: Spontaneous
  Country: EU (occurrence: EU)
  Receive Date: 20251021
  Receipt Date: 20251021
  Transmission Date: 20260118
  Serious: Yes (Other)
  Sender: NOVO NORDISK
  Company Number: EU-NOVOPROD-1539100

PATIENT
  Age: 396 Month
  Sex: Female
  Weight: 62 kg

DRUGS (1)
  1. SOGROYA [Suspect]
     Active Substance: SOMAPACITAN-BECO
     Indication: Growth hormone deficiency
     Dosage: UNK

REACTIONS (1)
  - Polycystic ovarian syndrome [Not Recovered/Not Resolved]

NARRATIVE: CASE EVENT DATE: 20250101
